FAERS Safety Report 6096023-X (Version None)
Quarter: 2009Q1

REPORT INFORMATION
  Report Type: 
  Country: None (occurrence: None)
  Receive Date: 20090227
  Receipt Date: 20080812
  Transmission Date: 20090719
  Serious: No
  Sender: FDA-Public Use
  Company Number: A0742187A

PATIENT
  Age: 33 Year
  Sex: Female

DRUGS (4)
  1. LAMICTAL [Suspect]
     Indication: BIPOLAR DISORDER
     Dosage: 100MG TWICE PER DAY
     Route: 048
     Dates: start: 20040101
  2. ORTHO-NOVUM [Suspect]
     Dates: start: 20070201, end: 20080201
  3. SEASONALE [Suspect]
     Dates: start: 20030101, end: 20070201
  4. XANAX [Concomitant]

REACTIONS (2)
  - OVARIAN CYST [None]
  - SURGERY [None]
